FAERS Safety Report 9483456 (Version 2)
Quarter: 2013Q3

REPORT INFORMATION
  Report Type: Spontaneous
  Country: CA (occurrence: CA)
  Receive Date: 20130828
  Receipt Date: 20130828
  Transmission Date: 20140515
  Serious: Yes (Hospitalization)
  Sender: FDA-Public Use
  Company Number: CA-AMGEN-KDL264279

PATIENT
  Age: 43 Year
  Sex: Female
  Weight: 99.9 kg

DRUGS (1)
  1. ENBREL [Suspect]
     Indication: RHEUMATOID ARTHRITIS
     Dosage: 50 MG, QWK
     Route: 058
     Dates: start: 20080122, end: 20080122

REACTIONS (5)
  - Hypersensitivity [Recovering/Resolving]
  - Loss of consciousness [Recovering/Resolving]
  - Dizziness [Recovering/Resolving]
  - Hyperhidrosis [Recovering/Resolving]
  - Tachycardia [Unknown]
